FAERS Safety Report 18273118 (Version 8)
Quarter: 2021Q3

REPORT INFORMATION
  Report Type: Report from Study
  Country: US (occurrence: US)
  Receive Date: 20200916
  Receipt Date: 20210903
  Transmission Date: 20211014
  Serious: Yes (Hospitalization, Other)
  Sender: FDA-Public Use
  Company Number: NVSC2020US247873

PATIENT
  Age: 77 Year
  Sex: Male

DRUGS (4)
  1. TABRECTA [Suspect]
     Active Substance: CAPMATINIB
     Indication: NON-SMALL CELL LUNG CANCER
     Dosage: UNK
     Route: 065
  2. TABRECTA [Suspect]
     Active Substance: CAPMATINIB
     Dosage: UNK
     Route: 065
  3. TABRECTA [Suspect]
     Active Substance: CAPMATINIB
     Dosage: 400 MG, BID
     Route: 048
  4. TABRECTA [Suspect]
     Active Substance: CAPMATINIB
     Dosage: 300 MG, BID
     Route: 048
     Dates: start: 20200813

REACTIONS (13)
  - Nephropathy [Recovered/Resolved]
  - Blood magnesium abnormal [Unknown]
  - Blister [Unknown]
  - Product dose omission issue [Unknown]
  - Peripheral swelling [Unknown]
  - Fall [Unknown]
  - Somnolence [Unknown]
  - Blood iron decreased [Unknown]
  - Renal impairment [Unknown]
  - Blood sodium abnormal [Unknown]
  - Hypertension [Recovered/Resolved]
  - Oedema peripheral [Unknown]
  - Nausea [Not Recovered/Not Resolved]

NARRATIVE: CASE EVENT DATE: 20200826
